FAERS Safety Report 9950195 (Version 2)
Quarter: 2014Q2

REPORT INFORMATION
  Report Type: Spontaneous
  Country: FR (occurrence: FR)
  Receive Date: 20140304
  Receipt Date: 20140408
  Transmission Date: 20141212
  Serious: Yes (Hospitalization, Other)
  Sender: FDA-Public Use
  Company Number: 2014SP000990

PATIENT
  Age: 72 Year
  Sex: Female

DRUGS (3)
  1. HALOPERIDOL DECANOATE [Suspect]
     Indication: MENTAL DISORDER
  2. FLECAINIDE [Suspect]
     Indication: ATRIAL FIBRILLATION
  3. IRBESARTAN [Concomitant]

REACTIONS (8)
  - Drug interaction [Recovering/Resolving]
  - Toxicity to various agents [Recovering/Resolving]
  - Electrocardiogram QRS complex prolonged [Recovering/Resolving]
  - Ventricular tachycardia [Recovering/Resolving]
  - Cardiac failure congestive [Recovering/Resolving]
  - Metabolic acidosis [Recovering/Resolving]
  - Left ventricular hypertrophy [Recovering/Resolving]
  - Renal failure [Recovering/Resolving]
